FAERS Safety Report 11656233 (Version 1)
Quarter: 2015Q4

REPORT INFORMATION
  Report Type: Spontaneous
  Country: US (occurrence: US)
  Receive Date: 20151023
  Receipt Date: 20151023
  Transmission Date: 20160304
  Serious: No
  Sender: FDA-Public Use
  Company Number: US-DSJP-DSU-2015-130283

PATIENT
  Age: 44 Year
  Sex: Female

DRUGS (2)
  1. SAVAYSA [Suspect]
     Active Substance: EDOXABAN TOSYLATE
     Indication: HYPERTENSION
  2. SAVAYSA [Suspect]
     Active Substance: EDOXABAN TOSYLATE
     Indication: PERIPHERAL SWELLING
     Dosage: 30 MG, QD
     Route: 048

REACTIONS (3)
  - Off label use [Unknown]
  - Drug prescribing error [Unknown]
  - No adverse event [Unknown]
